FAERS Safety Report 23185556 (Version 1)
Quarter: 2023Q4

REPORT INFORMATION
  Report Type: Spontaneous
  Country: US (occurrence: None)
  Receive Date: 20231114
  Receipt Date: 20231114
  Transmission Date: 20240110
  Serious: Yes (Other)
  Sender: FDA-Public Use
  Company Number: None

PATIENT
  Age: 61 Year
  Sex: Female
  Weight: 116.1 kg

DRUGS (10)
  1. REPATHA [Suspect]
     Active Substance: EVOLOCUMAB
     Indication: Hyperlipidaemia
     Dosage: OTHER QUANTITY : 2 INJECTION(S);?OTHER FREQUENCY : 1 INJ EVERY 14 DAY;?
     Route: 058
     Dates: start: 20231030, end: 20231102
  2. LEVOTHYROXINE [Concomitant]
     Active Substance: LEVOTHYROXINE
  3. ESOMEPRAZOLE [Concomitant]
     Active Substance: ESOMEPRAZOLE
  4. ELIQUIS [Concomitant]
     Active Substance: APIXABAN
  5. CYCLOBENZAPRINE [Concomitant]
     Active Substance: CYCLOBENZAPRINE
  6. ACETAMINOPHEN\HYDROCODONE [Concomitant]
     Active Substance: ACETAMINOPHEN\HYDROCODONE
  7. EZETIMIBE [Concomitant]
     Active Substance: EZETIMIBE
  8. SUCRALFATE [Concomitant]
     Active Substance: SUCRALFATE
  9. VITAMINS [Concomitant]
     Active Substance: VITAMINS
  10. MAGNESIUM [Concomitant]
     Active Substance: MAGNESIUM

REACTIONS (2)
  - Headache [None]
  - Therapy cessation [None]

NARRATIVE: CASE EVENT DATE: 20231030
